FAERS Safety Report 7142266-3 (Version None)
Quarter: 2010Q4

REPORT INFORMATION
  Report Type: 
  Country: None (occurrence: None)
  Receive Date: 20101112
  Receipt Date: 20100803
  Transmission Date: 20110411
  Serious: No
  Sender: FDA-Public Use
  Company Number: 1000015474

PATIENT
  Age: 48 Year
  Sex: Male

DRUGS (13)
  1. SAVELLA [Suspect]
     Indication: NEURALGIA
     Dosage: 12.5 MG (12.5 MG, 1 IN 1 D) ORAL; 25 MG (12.5 MG, 2 IN 1 D) ORAL;  50 MG (25 MG, 2 IN 1 D) ORAL
     Route: 048
     Dates: start: 20100420, end: 20100420
  2. SAVELLA [Suspect]
     Indication: NEUROPATHY PERIPHERAL
     Dosage: 12.5 MG (12.5 MG, 1 IN 1 D) ORAL; 25 MG (12.5 MG, 2 IN 1 D) ORAL;  50 MG (25 MG, 2 IN 1 D) ORAL
     Route: 048
     Dates: start: 20100420, end: 20100420
  3. SAVELLA [Suspect]
     Indication: NEURALGIA
     Dosage: 12.5 MG (12.5 MG, 1 IN 1 D) ORAL; 25 MG (12.5 MG, 2 IN 1 D) ORAL;  50 MG (25 MG, 2 IN 1 D) ORAL
     Route: 048
     Dates: start: 20100421, end: 20100422
  4. SAVELLA [Suspect]
     Indication: NEUROPATHY PERIPHERAL
     Dosage: 12.5 MG (12.5 MG, 1 IN 1 D) ORAL; 25 MG (12.5 MG, 2 IN 1 D) ORAL;  50 MG (25 MG, 2 IN 1 D) ORAL
     Route: 048
     Dates: start: 20100421, end: 20100422
  5. SAVELLA [Suspect]
     Indication: NEURALGIA
     Dosage: 12.5 MG (12.5 MG, 1 IN 1 D) ORAL; 25 MG (12.5 MG, 2 IN 1 D) ORAL;  50 MG (25 MG, 2 IN 1 D) ORAL
     Route: 048
     Dates: start: 20100423, end: 20100426
  6. SAVELLA [Suspect]
     Indication: NEUROPATHY PERIPHERAL
     Dosage: 12.5 MG (12.5 MG, 1 IN 1 D) ORAL; 25 MG (12.5 MG, 2 IN 1 D) ORAL;  50 MG (25 MG, 2 IN 1 D) ORAL
     Route: 048
     Dates: start: 20100423, end: 20100426
  7. SAVELLA [Suspect]
     Indication: NEURALGIA
     Dosage: 50 MG (50 MG, 2 IN 1 D), ORAL
     Route: 048
     Dates: start: 20100427, end: 20100101
  8. SAVELLA [Suspect]
     Indication: NEUROPATHY PERIPHERAL
     Dosage: 50 MG (50 MG, 2 IN 1 D), ORAL
     Route: 048
     Dates: start: 20100427, end: 20100101
  9. DURAGESIC-50 [Concomitant]
  10. VITAMIN D [Concomitant]
  11. PERCOCET [Concomitant]
  12. AMITIZA [Concomitant]
  13. VITAMIN B-12 [Concomitant]

REACTIONS (2)
  - RASH MACULO-PAPULAR [None]
  - URINARY RETENTION [None]
